FAERS Safety Report 7992869 (Version 5)
Quarter: 2013Q3

REPORT INFORMATION
  Report Type: Spontaneous
  Country: GB (occurrence: GB)
  Receive Date: 20110615
  Receipt Date: 20130702
  Transmission Date: 20140515
  Serious: Yes (Death, Life-Threatening, Hospitalization, Other)
  Sender: FDA-Public Use
  Company Number: GB-TEVA-285441ISR

PATIENT
  Age: 8 Year
  Sex: Female
  Weight: 22.4 kg

DRUGS (24)
  1. METHOTREXATE TEVA [Suspect]
     Indication: PROPHYLAXIS AGAINST GRAFT VERSUS HOST DISEASE
     Dosage: 8.5 MILLIGRAM DAILY;
     Route: 040
     Dates: start: 20110508, end: 20110508
  2. METHOTREXATE TEVA [Suspect]
     Dosage: 8.5 MILLIGRAM DAILY;
     Route: 040
     Dates: start: 20110511
  3. CYCLOPHOSPHAMIDE BAXTER [Suspect]
     Indication: PROPHYLAXIS AGAINST GRAFT VERSUS HOST DISEASE
     Dosage: 1120 MILLIGRAM DAILY;
     Route: 041
     Dates: start: 20110429, end: 20110502
  4. CYCLOPHOSPHAMIDE BAXTER [Suspect]
     Indication: THALASSAEMIA BETA
  5. BUSULFAN [Suspect]
     Indication: PROPHYLAXIS AGAINST GRAFT VERSUS HOST DISEASE
     Route: 048
     Dates: start: 20110425, end: 20110428
  6. BUSULFAN [Suspect]
     Indication: THALASSAEMIA BETA
  7. CICLOSPORIN [Suspect]
     Indication: PROPHYLAXIS AGAINST GRAFT VERSUS HOST DISEASE
  8. ALEMTUZUMAB [Suspect]
     Indication: BONE MARROW TRANSPLANT
     Route: 042
  9. ALEMTUZUMAB [Suspect]
     Indication: THALASSAEMIA BETA
  10. THIOTEPA [Concomitant]
  11. FOLINIC ACID [Concomitant]
  12. HYDROCORTISON [Concomitant]
  13. PARACETAMOL [Concomitant]
  14. PETHIDIN [Concomitant]
  15. DEFIBROTIDE [Concomitant]
  16. GANCICLOVIR [Concomitant]
  17. LINEZOLID [Concomitant]
  18. DAPSONE [Concomitant]
  19. ISONIAZID [Concomitant]
  20. OCTREOTIDE [Concomitant]
  21. CASPOFUNGIN [Concomitant]
  22. METRONIDAZOL [Concomitant]
  23. IMMUNOGLOBULIN [Concomitant]
  24. AMPHOTERICIN B, LIPOSOME [Concomitant]

REACTIONS (10)
  - Respiratory failure [Fatal]
  - Venoocclusive disease [Unknown]
  - Idiopathic pneumonia syndrome [Fatal]
  - Pulmonary haemorrhage [Not Recovered/Not Resolved]
  - Cytomegalovirus infection [Unknown]
  - Mucosal inflammation [Unknown]
  - Bacterial sepsis [Unknown]
  - Pulmonary hypertension [Unknown]
  - Renal failure [Unknown]
  - Liver disorder [Unknown]
